FAERS Safety Report 11292166 (Version 1)
Quarter: 2015Q3

REPORT INFORMATION
  Report Type: Spontaneous
  Country: US (occurrence: None)
  Receive Date: 20150721
  Receipt Date: 20150721
  Transmission Date: 20151125
  Serious: Yes (Hospitalization)
  Sender: FDA-Public Use
  Company Number: None

PATIENT
  Age: 89 Year
  Sex: Male

DRUGS (1)
  1. OMEPRAZOLE. [Suspect]
     Active Substance: OMEPRAZOLE
     Route: 048
     Dates: start: 20040404, end: 20120725

REACTIONS (3)
  - Acute kidney injury [None]
  - Renal cyst [None]
  - Tubulointerstitial nephritis [None]

NARRATIVE: CASE EVENT DATE: 20120725
